FAERS Safety Report 14371595 (Version 1)
Quarter: 2018Q1

REPORT INFORMATION
  Report Type: Report from Study
  Country: None (occurrence: DE)
  Receive Date: 20180110
  Receipt Date: 20180110
  Transmission Date: 20180509
  Serious: Yes (Death)
  Sender: FDA-Public Use
  Company Number: DE-ABBVIE-18K-062-2218262-00

PATIENT
  Age: 67 Year
  Sex: Female

DRUGS (1)
  1. DUODOPA [Suspect]
     Active Substance: CARBIDOPA\LEVODOPA
     Indication: PARKINSON^S DISEASE
     Dosage: MD 3.0 ML; CRD 3.1 ML/HR; CRN 1.7 ML/HR; ED 0.5 ML
     Route: 050
     Dates: start: 20140411

REACTIONS (1)
  - Seizure [Fatal]

NARRATIVE: CASE EVENT DATE: 20180107
